FAERS Safety Report 12263710 (Version 1)
Quarter: 2016Q2

REPORT INFORMATION
  Report Type: Report from Study
  Country: BR (occurrence: BR)
  Receive Date: 20160413
  Receipt Date: 20160413
  Transmission Date: 20160815
  Serious: No
  Sender: FDA-Public Use
  Company Number: PHHY2016BR048437

PATIENT
  Sex: Male
  Weight: 92 kg

DRUGS (2)
  1. EXJADE [Suspect]
     Active Substance: DEFERASIROX
     Indication: PRODUCT USED FOR UNKNOWN INDICATION
     Route: 065
  2. TASIGNA [Suspect]
     Active Substance: NILOTINIB
     Indication: CHRONIC MYELOID LEUKAEMIA
     Dosage: 800 MG, QD (2 DF IN MORNING AND 2 DF IN EVENING)
     Route: 048
     Dates: start: 20160322

REACTIONS (5)
  - Swelling face [Recovered/Resolved]
  - Skin disorder [Recovered/Resolved]
  - Inappropriate schedule of drug administration [Unknown]
  - Eye disorder [Recovered/Resolved]
  - Hypersensitivity [Recovered/Resolved]
